FAERS Safety Report 9266821 (Version 1)
Quarter: 2013Q2

REPORT INFORMATION
  Report Type: Spontaneous
  Country: US (occurrence: US)
  Receive Date: 20130502
  Receipt Date: 20130502
  Transmission Date: 20140414
  Serious: Yes (Hospitalization)
  Sender: FDA-Public Use
  Company Number: US-BAYER-2013-053357

PATIENT
  Age: 48 Year
  Sex: Female

DRUGS (6)
  1. YASMIN [Suspect]
     Dosage: UNK
     Dates: start: 20070803
  2. OCELLA [Suspect]
     Dosage: UNK
     Dates: start: 20070803, end: 20111011
  3. SYNTHROID [Concomitant]
  4. CYMBALTA [Concomitant]
  5. ZANAFLEX [Concomitant]
  6. AMITIZA [Concomitant]

REACTIONS (5)
  - Pulmonary embolism [None]
  - Loss of consciousness [None]
  - Asthenia [None]
  - Palpitations [None]
  - Hyperhidrosis [None]
